FAERS Safety Report 14186827 (Version 1)
Quarter: 2017Q4

REPORT INFORMATION
  Report Type: Spontaneous
  Country: AU (occurrence: AU)
  Receive Date: 20171112
  Receipt Date: 20171112
  Transmission Date: 20180321
  Serious: Yes (Other)
  Sender: FDA-Public Use
  Company Number: None

PATIENT
  Age: 56 Year
  Sex: Female
  Weight: 52 kg

DRUGS (2)
  1. HRT [Concomitant]
     Active Substance: UNSPECIFIED INGREDIENT
  2. HARVONI [Suspect]
     Active Substance: LEDIPASVIR\SOFOSBUVIR
     Indication: HEPATITIS C
     Dosage: ?          QUANTITY:1 TABLET(S);?
     Route: 048

REACTIONS (6)
  - Personality change [None]
  - Speech disorder [None]
  - Euphoric mood [None]
  - Impulse-control disorder [None]
  - Loss of employment [None]
  - Hypomania [None]

NARRATIVE: CASE EVENT DATE: 20160911
